FAERS Safety Report 6028588-8 (Version None)
Quarter: 2008Q4

REPORT INFORMATION
  Report Type: 
  Country: None (occurrence: None)
  Receive Date: 20081222
  Receipt Date: 20081027
  Transmission Date: 20090506
  Serious: No
  Sender: FDA-Public Use
  Company Number: US-WYE-H06611308

PATIENT
  Sex: Female

DRUGS (1)
  1. PRISTIQ [Suspect]
     Dosage: 50 MG ) FREQUENCY UNSPECIFIED)

REACTIONS (3)
  - DRY EYE [None]
  - DRY MOUTH [None]
  - RASH [None]
